FAERS Safety Report 25680117 (Version 2)
Quarter: 2025Q3

REPORT INFORMATION
  Report Type: Spontaneous
  Country: CN (occurrence: CN)
  Receive Date: 20250814
  Receipt Date: 20250903
  Transmission Date: 20251020
  Serious: Yes (Life-Threatening, Hospitalization, Other)
  Sender: ALKEM
  Company Number: None

PATIENT
  Age: 32 Year
  Sex: Male

DRUGS (5)
  1. LINEZOLID [Interacting]
     Active Substance: LINEZOLID
     Indication: Staphylococcal bacteraemia
     Dosage: 600 MILLIGRAM, BID (EVERY 12 HOURS) (INFUSION)
     Route: 042
     Dates: start: 20241219, end: 20241222
  2. LINEZOLID [Interacting]
     Active Substance: LINEZOLID
     Route: 065
  3. VANCOMYCIN [Suspect]
     Active Substance: VANCOMYCIN
     Indication: Staphylococcal bacteraemia
     Dosage: 1 GRAM, BID (EVERY 12 HOURS)
     Route: 065
     Dates: start: 202412, end: 20241219
  4. PENTAZOCINE [Interacting]
     Active Substance: PENTAZOCINE
     Indication: Wound complication
     Dosage: 30 MILLIGRAM, TID (EVERY 8 HOURS)
     Route: 030
     Dates: start: 20241205, end: 20241222
  5. PENTAZOCINE [Interacting]
     Active Substance: PENTAZOCINE
     Indication: Pain in extremity
     Route: 065
     Dates: start: 20241224

REACTIONS (6)
  - Drug interaction [Recovered/Resolved]
  - Serotonin syndrome [Recovered/Resolved]
  - Renal failure [Unknown]
  - Blood potassium increased [Unknown]
  - Urine output decreased [Unknown]
  - Blood creatinine increased [Unknown]
